FAERS Safety Report 9242662 (Version 1)
Quarter: 2013Q2

REPORT INFORMATION
  Report Type: Spontaneous
  Country: JP (occurrence: JP)
  Receive Date: 20130419
  Receipt Date: 20130419
  Transmission Date: 20140414
  Serious: Yes (Hospitalization)
  Sender: FDA-Public Use
  Company Number: JP-GLAXOSMITHKLINE-B0883731A

PATIENT
  Age: 34 Year
  Sex: Female

DRUGS (4)
  1. LAMICTAL [Suspect]
     Indication: DISSOCIATIVE DISORDER
     Dosage: 250MG PER DAY
     Route: 048
  2. CYMBALTA [Concomitant]
     Dosage: 40IUAX PER DAY
     Route: 048
  3. JZOLOFT [Concomitant]
     Indication: DEPRESSION
     Route: 048
  4. AMOXAN [Concomitant]
     Route: 048

REACTIONS (2)
  - Pneumonia aspiration [Unknown]
  - Overdose [Unknown]
